FAERS Safety Report 14707984 (Version 3)
Quarter: 2018Q2

REPORT INFORMATION
  Report Type: Spontaneous
  Country: US (occurrence: US)
  Receive Date: 20180403
  Receipt Date: 20180626
  Transmission Date: 20180711
  Serious: Yes (Hospitalization)
  Sender: FDA-Public Use
  Company Number: US-PFIZER INC-2018132476

PATIENT
  Age: 71 Year
  Sex: Female
  Weight: 72.12 kg

DRUGS (2)
  1. IBRANCE [Suspect]
     Active Substance: PALBOCICLIB
     Indication: BREAST CANCER FEMALE
     Dosage: 125 MG, CYCLIC (1 CAP QD X21 D THEN 7D OFF)
     Route: 048
     Dates: start: 20180221, end: 2018
  2. IBRANCE [Suspect]
     Active Substance: PALBOCICLIB
     Dosage: 125 MG, CYCLIC (21 DAYS ON AND 7 DAYS OFF)
     Route: 048
     Dates: start: 20180328, end: 20180620

REACTIONS (2)
  - Pneumonia [Unknown]
  - White blood cell count decreased [Not Recovered/Not Resolved]
